FAERS Safety Report 6129360-0 (Version None)
Quarter: 2009Q1

REPORT INFORMATION
  Report Type: 
  Country: None (occurrence: None)
  Receive Date: 20090324
  Receipt Date: 20090316
  Transmission Date: 20090719
  Serious: Yes (Other)
  Sender: FDA-Public Use
  Company Number: PHHY2009BR10177

PATIENT
  Age: 84 Year
  Sex: Female

DRUGS (3)
  1. DIOVAN AMLO FIX [Suspect]
     Dosage: 320/10MG
     Route: 048
  2. ATENOLOL [Concomitant]
  3. FUROSEMIDE [Concomitant]

REACTIONS (5)
  - ABDOMINAL PAIN [None]
  - BREAST OEDEMA [None]
  - LOCALISED OEDEMA [None]
  - OEDEMA [None]
  - SKIN OEDEMA [None]
